FAERS Safety Report 9948598 (Version 1)
Quarter: 2014Q1

REPORT INFORMATION
  Report Type: Report from Study
  Country: US (occurrence: US)
  Receive Date: 20140303
  Receipt Date: 20140303
  Transmission Date: 20141002
  Serious: No
  Sender: FDA-Public Use
  Company Number: US-ABBVIE-13P-163-1061237-00

PATIENT
  Age: 58 Year
  Sex: Female
  Weight: 93.07 kg

DRUGS (5)
  1. HUMIRA (ABBOTT) [Suspect]
     Indication: CROHN^S DISEASE
     Dates: start: 201301, end: 20130215
  2. PRILOSEC [Concomitant]
     Indication: PRODUCT USED FOR UNKNOWN INDICATION
  3. VITAMIN B COMPLEX [Concomitant]
     Indication: PRODUCT USED FOR UNKNOWN INDICATION
     Route: 048
  4. VITAMIN B12 [Concomitant]
     Indication: PRODUCT USED FOR UNKNOWN INDICATION
     Route: 050
  5. IRON [Concomitant]
     Indication: PRODUCT USED FOR UNKNOWN INDICATION

REACTIONS (2)
  - Pulmonary congestion [Not Recovered/Not Resolved]
  - Influenza [Not Recovered/Not Resolved]
